FAERS Safety Report 19514479 (Version 1)
Quarter: 2021Q3

REPORT INFORMATION
  Report Type: Other
  Country: GB (occurrence: GB)
  Receive Date: 20210709
  Receipt Date: 20210709
  Transmission Date: 20211014
  Serious: Yes (Other)
  Sender: FDA-Public Use
  Company Number: GB-LUPIN PHARMACEUTICALS INC.-2021-11212

PATIENT
  Age: 52 Year
  Sex: Male
  Weight: 114 kg

DRUGS (3)
  1. ASTRAZENECA COVID?19 VACCINE [Concomitant]
     Active Substance: AZD-1222
     Indication: PRODUCT USED FOR UNKNOWN INDICATION
     Dosage: 1 DOSE
     Route: 030
     Dates: start: 20210526
  2. SERTRALINE 50 MG TABLETS [Suspect]
     Active Substance: SERTRALINE HYDROCHLORIDE
     Indication: PRODUCT USED FOR UNKNOWN INDICATION
     Dosage: ONE TO BE TAKEN EACH DAY
     Route: 065
     Dates: start: 20210616, end: 20210621
  3. VENLAFAXINE [Concomitant]
     Active Substance: VENLAFAXINE HYDROCHLORIDE
     Indication: PRODUCT USED FOR UNKNOWN INDICATION
     Dosage: ONE TO BE TAKEN TWICE A DAY
     Route: 065
     Dates: start: 20210621

REACTIONS (2)
  - Angioedema [Recovering/Resolving]
  - Mouth swelling [Unknown]

NARRATIVE: CASE EVENT DATE: 2021
